FAERS Safety Report 10146635 (Version 1)
Quarter: 2014Q2

REPORT INFORMATION
  Report Type: Spontaneous
  Country: US (occurrence: None)
  Receive Date: 20140430
  Receipt Date: 20140430
  Transmission Date: 20141212
  Serious: Yes (Hospitalization)
  Sender: FDA-Public Use
  Company Number: None

PATIENT
  Age: 85 Year
  Sex: Female

DRUGS (7)
  1. WARFARIN [Suspect]
     Indication: PULMONARY EMBOLISM
     Route: 048
     Dates: start: 20140125, end: 20140125
  2. AMLODIPINE [Concomitant]
  3. PHENYTOIN [Concomitant]
  4. FUROSEMIDE [Concomitant]
  5. LEVETIRACETAM [Concomitant]
  6. LEVOTHYROXINE [Concomitant]
  7. ATORVASTATIN [Concomitant]

REACTIONS (2)
  - Fall [None]
  - Haemorrhage intracranial [None]
